FAERS Safety Report 18797710 (Version 4)
Quarter: 2021Q1

REPORT INFORMATION
  Report Type: Report from Study
  Country: IL (occurrence: IL)
  Receive Date: 20210128
  Receipt Date: 20210312
  Transmission Date: 20210419
  Serious: Yes (Hospitalization)
  Sender: FDA-Public Use
  Company Number: IL-ROCHE-2757355

PATIENT
  Age: 54 Year
  Sex: Male
  Weight: 72 kg

DRUGS (3)
  1. OBINUTUZUMAB. [Suspect]
     Active Substance: OBINUTUZUMAB
     Dosage: CYCLE 1: 100 MG, DAY 1; 900 MG, DAY 1; 1000 MG, DAY 8 AND 15, EVERY 28 DAYS?CYCLES 2?6: 1000 MG, DAY
     Route: 042
     Dates: start: 20210111, end: 20210113
  2. OBINUTUZUMAB. [Suspect]
     Active Substance: OBINUTUZUMAB
     Indication: CHRONIC LYMPHOCYTIC LEUKAEMIA
     Dosage: CYCLE 1: 100 MG, DAY 1; 900 MG, DAY 1; 1000 MG, DAY 8 AND 15, EVERY 28 DAYS?CYCLES 2?6: 1000 MG, DAY
     Route: 042
     Dates: start: 20190202
  3. VENETOCLAX. [Suspect]
     Active Substance: VENETOCLAX
     Indication: CHRONIC LYMPHOCYTIC LEUKAEMIA
     Dosage: CYCLE 1: 20 MG (2 TABLET AT 10 MG), DAY 22?28, EVERY 28 DAYS ?CYCLE 2: 50 MG (1 TABLET  AT 50 MG), D
     Route: 048

REACTIONS (1)
  - Abscess [Recovering/Resolving]

NARRATIVE: CASE EVENT DATE: 20210110
